FAERS Safety Report 5566504-3 (Version None)
Quarter: 2007Q4

REPORT INFORMATION
  Report Type: 
  Country: None (occurrence: None)
  Receive Date: 20071214
  Receipt Date: 20071204
  Transmission Date: 20080405
  Serious: Yes (Death)
  Sender: FDA-Public Use
  Company Number: 2007AL005195

PATIENT
  Sex: Female

DRUGS (4)
  1. OXYCODONE HCL [Suspect]
     Dosage: 30 MG; UNK; UNK
  2. CARISOPRODOL [Concomitant]
  3. HYDROCODONE BITARTRATE + ACETAMINOPHEN [Concomitant]
  4. ALPRAZOLAM [Concomitant]

REACTIONS (1)
  - PAIN [None]
